FAERS Safety Report 6854879-4 (Version None)
Quarter: 2010Q3

REPORT INFORMATION
  Report Type: 
  Country: None (occurrence: None)
  Receive Date: 20100717
  Receipt Date: 20080211
  Transmission Date: 20110219
  Serious: Yes (Other)
  Sender: FDA-Public Use
  Company Number: US-PFIZER INC-2008004143

PATIENT
  Sex: Male
  Weight: 91 kg

DRUGS (1)
  1. CHANTIX [Suspect]
     Indication: SMOKING CESSATION THERAPY
     Dates: start: 20071214, end: 20080108

REACTIONS (2)
  - DEPRESSION [None]
  - SUICIDAL BEHAVIOUR [None]
